FAERS Safety Report 16804686 (Version 3)
Quarter: 2020Q2

REPORT INFORMATION
  Report Type: Spontaneous
  Country: ES (occurrence: ES)
  Receive Date: 20190913
  Receipt Date: 20200519
  Transmission Date: 20200713
  Serious: Yes (Other)
  Sender: FDA-Public Use
  Company Number: ES-PFIZER INC-2019379735

PATIENT
  Age: 71 Year
  Sex: Female

DRUGS (9)
  1. QUETIAPINE. [Suspect]
     Active Substance: QUETIAPINE
     Dosage: 200 MG, 2X/DAY WITH BREAKFAST AND DINNER
  2. SIMVASTATIN. [Concomitant]
     Active Substance: SIMVASTATIN
     Dosage: 10 MG, WITH THE DINNER
  3. OMEPRAZOLE. [Suspect]
     Active Substance: OMEPRAZOLE
     Dosage: 20 MG, DAILY
  4. AMLODIPINE BESILATE [Suspect]
     Active Substance: AMLODIPINE BESYLATE
     Dosage: 5 MG, 1X/DAY WITH BREAKFAST
  5. LOSARTAN POTASSIUM. [Concomitant]
     Active Substance: LOSARTAN POTASSIUM
     Dosage: 100 MG, WITH BREAKFAST
  6. BROMAZEPAM [Suspect]
     Active Substance: BROMAZEPAM
     Dosage: 3 MG, 3X/DAY EVERY 8 HOURS
  7. ACETYLSALICYLIC ACID [Concomitant]
     Active Substance: ASPIRIN
     Dosage: 100 MG, DAILY
  8. PREGABALIN. [Suspect]
     Active Substance: PREGABALIN
     Dosage: 75 MG, 3X/DAY EVERY 8 HOURS
  9. OXCARBAZEPINE. [Suspect]
     Active Substance: OXCARBAZEPINE
     Dosage: 300 MG, 2X/DAY  EVERY 12 HOURS

REACTIONS (1)
  - Parkinsonism [Recovering/Resolving]
